FAERS Safety Report 25376572 (Version 1)
Quarter: 2025Q2

REPORT INFORMATION
  Report Type: Spontaneous
  Country: PR (occurrence: PR)
  Receive Date: 20250530
  Receipt Date: 20250530
  Transmission Date: 20250717
  Serious: Yes (Hospitalization)
  Sender: BRISTOL-MYERS SQUIBB COMPANY
  Company Number: PR-BRISTOL-MYERS SQUIBB COMPANY-2025-073486

PATIENT
  Age: 73 Year
  Sex: Male

DRUGS (2)
  1. POMALYST [Suspect]
     Active Substance: POMALIDOMIDE
     Indication: Plasma cell myeloma
     Dosage: ONCE A DAY FOR 21 DAYS, FOLLOWED BY A 7-DAY DRUG-FREE BREAK
     Route: 048
  2. POMALYST [Suspect]
     Active Substance: POMALIDOMIDE
     Dosage: ONCE A DAY FOR 21 DAYS, FOLLOWED BY A 7-DAY DRUG-FREE BREAK
     Route: 048
     Dates: start: 202501

REACTIONS (1)
  - Radiation injury [Unknown]

NARRATIVE: CASE EVENT DATE: 20250427
